FAERS Safety Report 15256494 (Version 1)
Quarter: 2018Q3

REPORT INFORMATION
  Report Type: Spontaneous
  Country: US (occurrence: US)
  Receive Date: 20180718
  Receipt Date: 20180718
  Transmission Date: 20181010
  Serious: Yes (Hospitalization)
  Sender: FDA-Public Use
  Company Number: None

PATIENT
  Age: 44 Year
  Sex: Male
  Weight: 108.86 kg

DRUGS (1)
  1. TALTZ [Suspect]
     Active Substance: IXEKIZUMAB
     Dosage: ?          OTHER FREQUENCY:EVERY 4 WEEKS ;?
     Route: 058
     Dates: start: 20170710, end: 20180718

REACTIONS (1)
  - Transient ischaemic attack [None]
